FAERS Safety Report 9455533 (Version 2)
Quarter: 2013Q3

REPORT INFORMATION
  Report Type: Spontaneous
  Country: US (occurrence: US)
  Receive Date: 20130813
  Receipt Date: 20130916
  Transmission Date: 20140515
  Serious: No
  Sender: FDA-Public Use
  Company Number: US-PFIZER INC-2013232634

PATIENT
  Sex: Male

DRUGS (1)
  1. LYRICA [Suspect]
     Indication: PAIN IN EXTREMITY
     Dosage: UNK, 1X/DAY
     Dates: start: 20130806

REACTIONS (4)
  - Allergy to arthropod bite [Unknown]
  - Rash [Unknown]
  - Rash maculo-papular [Unknown]
  - Papule [Unknown]
